FAERS Safety Report 9277561 (Version 1)
Quarter: 2013Q2

REPORT INFORMATION
  Report Type: Spontaneous
  Country: US (occurrence: US)
  Receive Date: 20130508
  Receipt Date: 20130508
  Transmission Date: 20140414
  Serious: Yes (Other)
  Sender: FDA-Public Use
  Company Number: US-JNJFOC-20130413866

PATIENT
  Sex: Male

DRUGS (1)
  1. RISPERIDONE [Suspect]
     Indication: PRODUCT USED FOR UNKNOWN INDICATION
     Route: 048
     Dates: start: 201304, end: 201304

REACTIONS (7)
  - Delusion [Unknown]
  - Pyrexia [Unknown]
  - Drooling [Unknown]
  - Stomatitis [Unknown]
  - Muscle spasms [Unknown]
  - Nervous system disorder [Unknown]
  - Overdose [Unknown]
